FAERS Safety Report 19013994 (Version 1)
Quarter: 2021Q1

REPORT INFORMATION
  Report Type: Spontaneous
  Country: DE (occurrence: DE)
  Receive Date: 20210315
  Receipt Date: 20210315
  Transmission Date: 20210420
  Serious: Yes (Life-Threatening, Hospitalization, Other)
  Sender: FDA-Public Use
  Company Number: DE-SUN PHARMACEUTICAL INDUSTRIES LTD-2021R1-285804

PATIENT
  Age: 60 Year
  Sex: Male

DRUGS (1)
  1. AMITRIPTYLINE [Suspect]
     Active Substance: AMITRIPTYLINE
     Indication: ANTIDEPRESSANT THERAPY
     Dosage: UNK
     Route: 065

REACTIONS (5)
  - Toxicity to various agents [Unknown]
  - Circulatory collapse [Unknown]
  - Suicide attempt [Unknown]
  - Loss of consciousness [Unknown]
  - Pulseless electrical activity [Unknown]
